FAERS Safety Report 23820969 (Version 1)
Quarter: 2024Q2

REPORT INFORMATION
  Report Type: Spontaneous
  Country: US (occurrence: None)
  Receive Date: 20240503
  Receipt Date: 20240503
  Transmission Date: 20240716
  Serious: Yes (Hospitalization)
  Sender: FDA-Public Use
  Company Number: None

PATIENT
  Age: 81 Year
  Sex: Male

DRUGS (1)
  1. WARFARIN SODIUM [Suspect]
     Active Substance: WARFARIN SODIUM
     Dosage: FREQUENCY : DAILY;?
     Dates: start: 20220919, end: 20221116

REACTIONS (4)
  - Haemoglobin decreased [None]
  - Haemorrhage [None]
  - Occult blood positive [None]
  - International normalised ratio increased [None]

NARRATIVE: CASE EVENT DATE: 20221121
